FAERS Safety Report 14471291 (Version 1)
Quarter: 2018Q1

REPORT INFORMATION
  Report Type: Spontaneous
  Country: US (occurrence: US)
  Receive Date: 20180131
  Receipt Date: 20180131
  Transmission Date: 20180509
  Serious: Yes (Hospitalization)
  Sender: FDA-Public Use
  Company Number: None

PATIENT
  Age: 84 Year
  Sex: Female
  Weight: 56.7 kg

DRUGS (3)
  1. ASPIRIN. [Concomitant]
     Active Substance: ASPIRIN
  2. CENTRUM [Concomitant]
     Active Substance: VITAMINS
  3. GABAPENTIN. [Suspect]
     Active Substance: GABAPENTIN
     Indication: NEURALGIA
     Dosage: 3 PILLS 3X A DAY MOUTH
     Route: 048
     Dates: start: 20171222, end: 20171226

REACTIONS (4)
  - Dyspnoea [None]
  - Asthenia [None]
  - Anxiety [None]
  - Withdrawal syndrome [None]

NARRATIVE: CASE EVENT DATE: 20171229
